FAERS Safety Report 22205015 (Version 1)
Quarter: 2023Q2

REPORT INFORMATION
  Report Type: Spontaneous
  Country: IT (occurrence: None)
  Receive Date: 20230413
  Receipt Date: 20230413
  Transmission Date: 20230721
  Serious: Yes (Life-Threatening)
  Sender: FDA-Public Use
  Company Number: None

PATIENT
  Age: 80 Year
  Sex: Female
  Weight: 53 kg

DRUGS (1)
  1. TECENTRIQ [Suspect]
     Active Substance: ATEZOLIZUMAB
     Indication: Lung adenocarcinoma
     Dosage: 1200 MG IV EVERY 21 DAYS
     Route: 041
     Dates: start: 20230209, end: 20230302

REACTIONS (3)
  - Cyanosis [Recovered/Resolved]
  - Hypoxia [Recovered/Resolved]
  - Clonus [Recovered/Resolved]

NARRATIVE: CASE EVENT DATE: 20230302
